FAERS Safety Report 24351465 (Version 1)
Quarter: 2024Q3

REPORT INFORMATION
  Report Type: Report from Study
  Country: IT (occurrence: IT)
  Receive Date: 20240923
  Receipt Date: 20240923
  Transmission Date: 20241017
  Serious: No
  Sender: ROCHE
  Company Number: IT-ROCHE-2423044

PATIENT
  Age: 51 Year
  Sex: Female
  Weight: 92.0 kg

DRUGS (13)
  1. HERCEPTIN [Suspect]
     Active Substance: TRASTUZUMAB
     Indication: Breast cancer metastatic
     Dosage: MOST RECENT DOSE PRIOR TO THE EVENT: 08/MAR/2018? FREQUENCY TEXT:OTHER
     Route: 042
     Dates: start: 20171013
  2. PERJETA [Suspect]
     Active Substance: PERTUZUMAB
     Indication: Breast cancer metastatic
     Dosage: MOST RECENT DOSE PRIOR TO THE EVENT: 02/NOV/2017? FREQUENCY TEXT:OTHER
     Route: 042
     Dates: start: 20171012
  3. TAXOTERE [Suspect]
     Active Substance: DOCETAXEL
     Indication: Breast cancer metastatic
     Dosage: MOST RECENT DOSE PRIOR TO AE 25/JAN/2018
     Route: 042
     Dates: start: 20171013
  4. FEMARA [Suspect]
     Active Substance: LETROZOLE
     Indication: Breast cancer metastatic
     Route: 048
     Dates: start: 20180215
  5. ACETAMINOPHEN [Concomitant]
     Active Substance: ACETAMINOPHEN
     Dosage: ONGOING = CHECKED
     Dates: start: 20171013
  6. DECAPEPTYL [Concomitant]
     Dosage: ONGOING = CHECKED
     Dates: start: 20190411
  7. PANTOPRAZOLE SODIUM [Concomitant]
     Active Substance: PANTOPRAZOLE SODIUM
     Indication: Disorientation
     Dosage: ONGOING = CHECKED
     Dates: start: 20191015
  8. DEXAMETHASONE [Concomitant]
     Active Substance: DEXAMETHASONE
     Indication: Disorientation
     Dosage: ONGOING = NOT CHECKED
     Dates: start: 20191015, end: 20200108
  9. VALPROATE SODIUM [Concomitant]
     Active Substance: VALPROATE SODIUM
     Indication: Disorientation
     Dosage: ONGOING = CHECKED
     Dates: start: 20191015
  10. ZOLEDRONIC ACID [Concomitant]
     Active Substance: ZOLEDRONIC ACID
     Dosage: ONGOING = CHECKED
     Dates: start: 20190228
  11. TRIMETON [Concomitant]
     Active Substance: CHLORPHENIRAMINE MALEATE
     Dosage: ONGOING = CHECKED
     Dates: start: 20171012
  12. BLACK COHOSH [Concomitant]
     Active Substance: BLACK COHOSH
     Dosage: ONGOING = CHECKED
     Dates: start: 20181004
  13. TAVOR (LORAZEPAM) [Concomitant]
     Active Substance: LORAZEPAM
     Dosage: ONGOING = CHECKED
     Dates: start: 20180419

REACTIONS (1)
  - Ejection fraction decreased [Recovered/Resolved]

NARRATIVE: CASE EVENT DATE: 20190916
